FAERS Safety Report 25374824 (Version 1)
Quarter: 2025Q2

REPORT INFORMATION
  Report Type: Spontaneous
  Country: US (occurrence: None)
  Receive Date: 20250529
  Receipt Date: 20250529
  Transmission Date: 20250716
  Serious: Yes (Life-Threatening, Disabling, Other)
  Sender: FDA-CTU
  Company Number: None

PATIENT
  Age: 27 Year
  Sex: Male
  Weight: 51.75 kg

DRUGS (2)
  1. CITALOPRAM [Suspect]
     Active Substance: CITALOPRAM
     Indication: Anxiety
  2. DIETARY SUPPLEMENT [Suspect]
     Active Substance: DIETARY SUPPLEMENT

REACTIONS (15)
  - Drug withdrawal syndrome [None]
  - Akathisia [None]
  - Paraesthesia [None]
  - Panic disorder [None]
  - Suicidal ideation [None]
  - Depression [None]
  - Genital hypoaesthesia [None]
  - Erectile dysfunction [None]
  - Genital atrophy [None]
  - Hypoaesthesia [None]
  - Anhedonia [None]
  - Emotional disorder [None]
  - Head discomfort [None]
  - Myalgia [None]
  - Muscle atrophy [None]

NARRATIVE: CASE EVENT DATE: 20230201
